FAERS Safety Report 9296966 (Version 1)
Quarter: 2013Q2

REPORT INFORMATION
  Report Type: Spontaneous
  Country: DE (occurrence: DE)
  Receive Date: 20130518
  Receipt Date: 20130518
  Transmission Date: 20140414
  Serious: Yes (Other)
  Sender: FDA-Public Use
  Company Number: DE-ROXANE LABORATORIES, INC.-2013-RO-00782RO

PATIENT
  Age: 21 Year
  Sex: Male

DRUGS (6)
  1. AZATHIOPRINE [Suspect]
     Indication: MYASTHENIA GRAVIS
     Dosage: 125 MG
     Route: 048
     Dates: start: 2004
  2. DEXAMETHASONE [Suspect]
     Indication: MYASTHENIA GRAVIS
     Dosage: 12 MG
     Route: 048
     Dates: start: 2004
  3. PYRIDOSTIGMINE BROMIDE [Suspect]
     Dosage: 180 MG
     Route: 048
  4. PYRIDOSTIGMINE BROMIDE [Suspect]
     Dosage: 360 MG
     Route: 048
  5. METHYLPHENIDATE HYDROCHLORIDE [Suspect]
     Route: 048
  6. HUMMAN IMMUNOGLOBULIN G [Suspect]
     Dosage: 1.65 G
     Route: 058

REACTIONS (1)
  - Melanocytic naevus [Not Recovered/Not Resolved]
